FAERS Safety Report 8636764 (Version 3)
Quarter: 2012Q4

REPORT INFORMATION
  Report Type: Report from Study
  Country: NL (occurrence: NL)
  Receive Date: 20120626
  Receipt Date: 20121005
  Transmission Date: 20130627
  Serious: Yes (Hospitalization)
  Sender: FDA-Public Use
  Company Number: NL-ROCHE-1081737

PATIENT
  Age: 52 Year
  Sex: Male
  Weight: 71 kg

DRUGS (2)
  1. ZELBORAF [Suspect]
     Indication: MALIGNANT MELANOMA
     Dosage: date of last dose prior to sae: 21/Jun/2012
     Route: 048
     Dates: start: 20120104
  2. METFORMIN [Concomitant]
     Route: 065
     Dates: start: 20120619

REACTIONS (1)
  - Hyperglycaemia [Recovered/Resolved]
